FAERS Safety Report 9262398 (Version 1)
Quarter: 2013Q2

REPORT INFORMATION
  Report Type: Spontaneous
  Country: FR (occurrence: FR)
  Receive Date: 20130430
  Receipt Date: 20130430
  Transmission Date: 20140414
  Serious: Yes (Hospitalization, Other)
  Sender: FDA-Public Use
  Company Number: FR-MERCK-1304FRA013979

PATIENT
  Age: 47 Year
  Sex: Male

DRUGS (6)
  1. REBETOL [Suspect]
     Indication: HEPATITIS C VIRUS TEST POSITIVE
     Dosage: UNK
     Route: 048
     Dates: start: 20121214
  2. PEGASYS [Suspect]
     Indication: HEPATITIS C VIRUS TEST POSITIVE
     Dosage: UNK
     Dates: start: 20121214
  3. INCIVO [Suspect]
     Indication: HEPATITIS C VIRUS TEST POSITIVE
     Dosage: UNK
     Dates: start: 20121214
  4. LASILIX [Suspect]
     Indication: PRODUCT USED FOR UNKNOWN INDICATION
     Dosage: UNK
     Dates: end: 201302
  5. PERINDOPRIL [Suspect]
     Indication: PRODUCT USED FOR UNKNOWN INDICATION
     Dosage: UNK
     Dates: end: 201302
  6. PREVISCAN [Suspect]
     Indication: PRODUCT USED FOR UNKNOWN INDICATION
     Dosage: UNK
     Dates: end: 201302

REACTIONS (5)
  - Bicytopenia [Recovering/Resolving]
  - Oedema peripheral [Recovered/Resolved]
  - Pruritus [Recovered/Resolved]
  - Urticaria [Recovered/Resolved]
  - Renal failure [Recovering/Resolving]
